FAERS Safety Report 18084534 (Version 3)
Quarter: 2020Q4

REPORT INFORMATION
  Report Type: Spontaneous
  Country: US (occurrence: US)
  Receive Date: 20200729
  Receipt Date: 20201223
  Transmission Date: 20210113
  Serious: Yes (Other)
  Sender: FDA-Public Use
  Company Number: US-GILEAD-2020-0485938

PATIENT
  Age: 60 Year
  Sex: Male

DRUGS (5)
  1. TRUVADA [Suspect]
     Active Substance: EMTRICITABINE\TENOFOVIR DISOPROXIL FUMARATE
     Indication: HIV INFECTION
     Dosage: UNK
     Route: 048
     Dates: start: 20100517, end: 20160926
  2. SYMTUZA [Concomitant]
     Active Substance: COBICISTAT\DARUNAVIR\EMTRICITABINE\TENOFOVIR ALAFENAMIDE
  3. BIKTARVY [Concomitant]
     Active Substance: BICTEGRAVIR SODIUM\EMTRICITABINE\TENOFOVIR ALAFENAMIDE FUMARATE
  4. GENVOYA [Concomitant]
     Active Substance: COBICISTAT\ELVITEGRAVIR\EMTRICITABINE\TENOFOVIR ALAFENAMIDE FUMARATE
  5. VIREAD [Suspect]
     Active Substance: TENOFOVIR DISOPROXIL FUMARATE
     Indication: ACQUIRED IMMUNODEFICIENCY SYNDROME
     Dosage: UNK
     Route: 048
     Dates: start: 20141124, end: 20160629

REACTIONS (14)
  - Intervertebral disc disorder [Unknown]
  - Rib fracture [Recovered/Resolved]
  - Renal failure [Unknown]
  - Weight decreased [Not Recovered/Not Resolved]
  - Eating disorder [Not Recovered/Not Resolved]
  - Degenerative bone disease [Not Recovered/Not Resolved]
  - Pain [Unknown]
  - Chronic kidney disease [Unknown]
  - Vitamin D deficiency [Unknown]
  - Bone density decreased [Recovered/Resolved]
  - Emotional distress [Unknown]
  - Tubulointerstitial nephritis [Unknown]
  - Sternal fracture [Recovered/Resolved]
  - Multiple fractures [Recovered/Resolved]

NARRATIVE: CASE EVENT DATE: 2016
